FAERS Safety Report 4821318-4 (Version None)
Quarter: 2005Q4

REPORT INFORMATION
  Report Type: 
  Country: None (occurrence: None)
  Receive Date: 20051107
  Receipt Date: 20050809
  Transmission Date: 20060501
  Serious: No
  Sender: FDA-Public Use
  Company Number: US-GLAXOSMITHKLINE-A0569528A

PATIENT
  Sex: Male

DRUGS (7)
  1. AVANDAMET [Suspect]
     Route: 048
     Dates: start: 20050807
  2. INSULIN [Concomitant]
  3. BLOOD PRESSURE MEDICATION [Concomitant]
  4. AVAPRO [Concomitant]
  5. LIPITOR [Concomitant]
  6. PREVACID [Concomitant]
  7. HYDROCHLOROTHIAZIDE [Concomitant]

REACTIONS (2)
  - ABDOMINAL DISTENSION [None]
  - DIARRHOEA [None]
